FAERS Safety Report 9331120 (Version 1)
Quarter: 2013Q2

REPORT INFORMATION
  Report Type: Spontaneous
  Country: IT (occurrence: None)
  Receive Date: 20130531
  Receipt Date: 20130531
  Transmission Date: 20140414
  Serious: Yes (Other)
  Sender: FDA-Public Use
  Company Number: 1732672

PATIENT
  Age: 70 Year
  Sex: Male

DRUGS (1)
  1. OXALIPLATIN [Suspect]
     Indication: RECTAL CANCER
     Dosage: 222.3 MG MILLIGRAM)S), CYCLICAL, INTRAVENOUS
     Dates: start: 20130521, end: 20130521

REACTIONS (4)
  - Tremor [None]
  - Hyperhidrosis [None]
  - Bronchospasm [None]
  - Hypersensitivity [None]
